FAERS Safety Report 5703034-X (Version None)
Quarter: 2008Q2

REPORT INFORMATION
  Report Type: 
  Country: None (occurrence: None)
  Receive Date: 20080411
  Receipt Date: 20080407
  Transmission Date: 20081010
  Serious: Yes (Hospitalization)
  Sender: FDA-Public Use
  Company Number: US-ASTRAZENECA-2008UW06951

PATIENT
  Age: 88 Year
  Sex: Female
  Weight: 52.2 kg

DRUGS (4)
  1. PULMICORT RESPULES [Suspect]
     Route: 055
  2. PLAVIX [Concomitant]
  3. NORVASC [Concomitant]
  4. DIGITEK [Concomitant]

REACTIONS (5)
  - MUSCLE RIGIDITY [None]
  - OEDEMA PERIPHERAL [None]
  - PRURITUS [None]
  - RASH [None]
  - THROMBOSIS [None]
